FAERS Safety Report 8296399-9 (Version None)
Quarter: 2012Q2

REPORT INFORMATION
  Report Type: 
  Country: None (occurrence: None)
  Receive Date: 20120418
  Receipt Date: 20120411
  Transmission Date: 20120825
  Serious: Yes (Other)
  Sender: FDA-Public Use
  Company Number: US-UCBSA-8049166

PATIENT
  Age: 19 Year
  Sex: Female
  Weight: 48.2 kg

DRUGS (14)
  1. CIMZIA [Suspect]
     Indication: CROHN'S DISEASE
     Route: 058
     Dates: start: 20090812
  2. METHOTREXATE [Concomitant]
     Dates: start: 20040101, end: 20040101
  3. LOMOTIL [Concomitant]
     Indication: DIARRHOEA
     Dosage: 2.5/.025 MG / AS NEEDED
     Route: 048
     Dates: start: 20090401
  4. ZOFRAN [Concomitant]
     Indication: CROHN'S DISEASE
     Dosage: AS NEEDED
     Route: 048
     Dates: start: 20090401
  5. METHOTREXATE [Concomitant]
     Indication: CROHN'S DISEASE
     Dates: start: 20090504
  6. METHOTREXATE [Concomitant]
     Route: 058
     Dates: start: 20090508, end: 20090622
  7. ZOFRAN [Concomitant]
     Indication: NAUSEA
     Dosage: AS NEEDED
     Route: 048
     Dates: start: 20090401
  8. CALCIUM PLUS D [Concomitant]
     Indication: CROHN'S DISEASE
  9. ULTRAM [Concomitant]
     Indication: CROHN'S DISEASE
     Dosage: AS NEEDED
     Route: 048
     Dates: start: 20090402
  10. CIMZIA [Suspect]
     Route: 058
     Dates: start: 20090428, end: 20090629
  11. FOLIC ACID [Concomitant]
     Indication: CROHN'S DISEASE
  12. IRON [Concomitant]
     Indication: CROHN'S DISEASE
  13. DIPHENOXYLATE HCL + ATROPINE SULFATE [Concomitant]
     Indication: CROHN'S DISEASE
  14. LOMOTIL [Concomitant]
     Indication: CROHN'S DISEASE
     Dosage: 2.5/.025 MG / AS NEEDED
     Route: 048
     Dates: start: 20090401

REACTIONS (2)
  - ABORTION SPONTANEOUS [None]
  - PREGNANCY [None]
